FAERS Safety Report 5159475-5 (Version None)
Quarter: 2006Q4

REPORT INFORMATION
  Report Type: 
  Country: None (occurrence: None)
  Receive Date: 20061122
  Receipt Date: 20061122
  Transmission Date: 20070319
  Serious: No
  Sender: FDA-Public Use
  Company Number: None

PATIENT
  Age: 79 Year
  Sex: Female

DRUGS (6)
  1. SIMVASTATIN [Suspect]
     Indication: HYPERCHOLESTEROLAEMIA
     Dosage: 80 MG  P.O.
     Route: 048
     Dates: start: 20060730, end: 20061015
  2. HYDROCHLOROTHIAZIDE [Concomitant]
  3. ESTRACE [Concomitant]
  4. SYNTHROID [Concomitant]
  5. MICRO-K [Concomitant]
  6. DIOVAN [Concomitant]

REACTIONS (2)
  - MUSCLE SPASMS [None]
  - MUSCULAR WEAKNESS [None]
